FAERS Safety Report 8638296 (Version 2)
Quarter: 2012Q4

REPORT INFORMATION
  Report Type: 
  Country: IT (occurrence: IT)
  Receive Date: 20120627
  Receipt Date: 20120911
  Transmission Date: 20130627
  Serious: Yes (Death, Other)
  Sender: FDA-Public Use
  Company Number: IT-JNJFOC-20120611655

PATIENT

DRUGS (5)
  1. DOXORUBICIN [Suspect]
     Indication: BONE SARCOMA
     Route: 042
  2. ADRIAMYCIN [Suspect]
     Indication: BONE SARCOMA
     Route: 065
  3. METHOTREXATE [Suspect]
     Indication: BONE SARCOMA
     Dosage: 120 g/m2
     Route: 065
  4. CISPLATIN [Suspect]
     Indication: BONE SARCOMA
     Route: 065
  5. IFOSFAMIDE [Suspect]
     Indication: BONE SARCOMA
     Dosage: 30 g/m2, 34 weeks
     Route: 065

REACTIONS (3)
  - Toxicity to various agents [Fatal]
  - Haematotoxicity [Unknown]
  - Off label use [Unknown]
